FAERS Safety Report 22388804 (Version 4)
Quarter: 2024Q1

REPORT INFORMATION
  Report Type: Report from Study
  Country: US (occurrence: US)
  Receive Date: 20230531
  Receipt Date: 20240120
  Transmission Date: 20240409
  Serious: No
  Sender: FDA-Public Use
  Company Number: US-002147023-NVSC2023US122041

PATIENT
  Sex: Female

DRUGS (1)
  1. LEQVIO [Suspect]
     Active Substance: INCLISIRAN SODIUM
     Indication: Product used for unknown indication
     Dosage: UNK
     Route: 058
     Dates: start: 20230424

REACTIONS (6)
  - Arthritis [Unknown]
  - Muscular weakness [Unknown]
  - Pain [Recovered/Resolved]
  - Arthralgia [Unknown]
  - Musculoskeletal discomfort [Unknown]
  - Injection site pain [Unknown]
